FAERS Safety Report 13690381 (Version 1)
Quarter: 2017Q2

REPORT INFORMATION
  Report Type: Report from Study
  Country: CA (occurrence: CA)
  Receive Date: 20170626
  Receipt Date: 20170626
  Transmission Date: 20170830
  Serious: Yes (Life-Threatening, Hospitalization)
  Sender: FDA-Public Use
  Company Number: CA-JNJFOC-20170606499

PATIENT
  Age: 63 Year
  Sex: Male
  Weight: 67 kg

DRUGS (1)
  1. REMICADE [Suspect]
     Active Substance: INFLIXIMAB
     Indication: COLITIS ULCERATIVE
     Route: 042
     Dates: start: 20100930

REACTIONS (7)
  - Weight decreased [Unknown]
  - Atrial fibrillation [Unknown]
  - Pneumonia [Recovering/Resolving]
  - Chest pain [Unknown]
  - Sepsis [Unknown]
  - Chest X-ray abnormal [Unknown]
  - Hypotension [Unknown]

NARRATIVE: CASE EVENT DATE: 2015
